FAERS Safety Report 5997233-X (Version None)
Quarter: 2008Q4

REPORT INFORMATION
  Report Type: 
  Country: None (occurrence: None)
  Receive Date: 20081212
  Receipt Date: 20081106
  Transmission Date: 20090506
  Serious: No
  Sender: FDA-Public Use
  Company Number: US-ABBOTT-08P-163-0486086-00

PATIENT
  Sex: Female
  Weight: 108.05 kg

DRUGS (4)
  1. HUMIRA [Suspect]
     Indication: PSORIASIS
     Route: 058
     Dates: start: 20080501
  2. HUMIRA [Suspect]
     Indication: RHEUMATOID ARTHRITIS
  3. HORMONE REPLACEMENT THERAPY [Concomitant]
     Indication: HORMONE REPLACEMENT THERAPY
     Route: 061
  4. TRIAMCINOLONE [Concomitant]
     Indication: PSORIASIS
     Route: 061

REACTIONS (1)
  - INJECTION SITE IRRITATION [None]
